FAERS Safety Report 13043556 (Version 1)
Quarter: 2016Q4

REPORT INFORMATION
  Report Type: Spontaneous
  Country: US (occurrence: US)
  Receive Date: 20161220
  Receipt Date: 20161220
  Transmission Date: 20170207
  Serious: No
  Sender: FDA-Public Use
  Company Number: US-BRISTOL-MYERS SQUIBB COMPANY-BMS-2016-108684

PATIENT
  Sex: Female
  Weight: 76 kg

DRUGS (2)
  1. KENALOG-10 [Suspect]
     Active Substance: TRIAMCINOLONE ACETONIDE
     Indication: JOINT SWELLING
     Dosage: UNK
     Route: 065
     Dates: start: 201511
  2. KENALOG-10 [Suspect]
     Active Substance: TRIAMCINOLONE ACETONIDE
     Indication: PAIN
     Dosage: UNK
     Route: 065
     Dates: start: 201410

REACTIONS (1)
  - Drug ineffective [Unknown]
